FAERS Safety Report 24769884 (Version 1)
Quarter: 2024Q4

REPORT INFORMATION
  Report Type: Spontaneous
  Country: CA (occurrence: CA)
  Receive Date: 20241224
  Receipt Date: 20241224
  Transmission Date: 20250115
  Serious: Yes (Life-Threatening, Hospitalization)
  Sender: MACLEODS
  Company Number: CA-MACLEODS PHARMA-MAC2024050768

PATIENT

DRUGS (1)
  1. OLANZAPINE [Suspect]
     Active Substance: OLANZAPINE
     Indication: Product used for unknown indication
     Dosage: 2 TO 5 TABLET,10MG TABLETS, OVERDOSE
     Route: 065

REACTIONS (10)
  - Pyrexia [Recovered/Resolved]
  - Ataxia [Recovering/Resolving]
  - Feeling jittery [Unknown]
  - Lethargy [Unknown]
  - Agitation [Unknown]
  - Somnolence [Unknown]
  - Tremor [Recovering/Resolving]
  - Blood prolactin increased [Unknown]
  - Accidental exposure to product by child [Unknown]
  - Accidental overdose [Unknown]
